FAERS Safety Report 17105022 (Version 1)
Quarter: 2019Q4

REPORT INFORMATION
  Report Type: Spontaneous
  Country: US (occurrence: US)
  Receive Date: 20191107
  Receipt Date: 20191107
  Transmission Date: 20200122
  Serious: No
  Sender: FDA-Public Use
  Company Number: None

PATIENT
  Age: 74 Year
  Sex: Female
  Weight: 89.81 kg

DRUGS (28)
  1. ASPIRIN 81MG [Concomitant]
     Active Substance: ASPIRIN
  2. CALCIUM + D [Concomitant]
     Active Substance: CALCIUM\VITAMIN D
  3. MIRALAX [Concomitant]
     Active Substance: POLYETHYLENE GLYCOL 3350
  4. BENICAR [Concomitant]
     Active Substance: OLMESARTAN MEDOXOMIL
  5. CARVEDILOL. [Concomitant]
     Active Substance: CARVEDILOL
  6. SENNA/DOCUSATE [Concomitant]
  7. RESTASIS [Concomitant]
     Active Substance: CYCLOSPORINE
  8. SINGULAIR [Concomitant]
     Active Substance: MONTELUKAST SODIUM
  9. CHLORTHALIDONE. [Concomitant]
     Active Substance: CHLORTHALIDONE
  10. MUCINEX [Concomitant]
     Active Substance: GUAIFENESIN
  11. PANTOPRAZOLE SODIUM. [Concomitant]
     Active Substance: PANTOPRAZOLE SODIUM
  12. BETAMETHASONE. [Concomitant]
     Active Substance: BETAMETHASONE
  13. ALBUTEROL. [Concomitant]
     Active Substance: ALBUTEROL
  14. AMLODIPINE [Concomitant]
     Active Substance: AMLODIPINE BESYLATE
  15. NAPROXEN. [Concomitant]
     Active Substance: NAPROXEN
  16. POLYVINYL ALCOHOL/POVIDINE (+) [Concomitant]
  17. ALBUTEROL IN [Concomitant]
  18. HYDROCODONE-ACETAMINOPHEN [Concomitant]
     Active Substance: ACETAMINOPHEN\HYDROCODONE
  19. VALSARTAN. [Concomitant]
     Active Substance: VALSARTAN
  20. DAPSONE 25MG [Suspect]
     Active Substance: DAPSONE
     Indication: COELIAC DISEASE
     Dosage: ?          QUANTITY:25 MG MILLIGRAM(S);?
     Route: 048
     Dates: start: 2019, end: 20190821
  21. BUDESONIDE/FORMOTEROL [Concomitant]
     Active Substance: BUDESONIDE\FORMOTEROL
  22. CETIRIZINE [Concomitant]
     Active Substance: CETIRIZINE HYDROCHLORIDE
  23. FLUTICASONE PROPIONATE. [Concomitant]
     Active Substance: FLUTICASONE PROPIONATE
  24. METFORMIN-XR [Concomitant]
  25. OMEGA-3 FATTY ACIDS [Concomitant]
     Active Substance: OMEGA-3 FATTY ACIDS
  26. PROMETHAZINE-CODEINE [Concomitant]
     Active Substance: CODEINE PHOSPHATE\PROMETHAZINE
  27. ROSUVASTATIN. [Concomitant]
     Active Substance: ROSUVASTATIN
  28. SARNA LOTION [Concomitant]

REACTIONS (7)
  - Insomnia [None]
  - Decreased appetite [None]
  - Anaemia [None]
  - Weight decreased [None]
  - Dyspnoea [None]
  - Fatigue [None]
  - Alopecia [None]

NARRATIVE: CASE EVENT DATE: 20190106
